FAERS Safety Report 5232234-0 (Version None)
Quarter: 2007Q1

REPORT INFORMATION
  Report Type: 
  Country: None (occurrence: None)
  Receive Date: 20061204
  Receipt Date: 20060803
  Transmission Date: 20070707
  Serious: No
  Sender: FDA-Public Use
  Company Number: 2006-BP-08322BP

PATIENT
  Age: 53 Year
  Sex: Male

DRUGS (5)
  1. SPIRIVA [Suspect]
     Indication: EMPHYSEMA
     Dosage: 18 MCG (18 MCG,QD),IH
     Dates: start: 20060301
  2. ALLEGRA (ALL OTHER THERAPEUTIC PRODUCTS) [Concomitant]
  3. SYNTHROID [Concomitant]
  4. ASPIRIN [Concomitant]
  5. SALAGEN [Concomitant]

REACTIONS (1)
  - VIRAL LOAD INCREASED [None]
